FAERS Safety Report 24584803 (Version 2)
Quarter: 2024Q4

REPORT INFORMATION
  Report Type: Spontaneous
  Country: JP (occurrence: JP)
  Receive Date: 20241106
  Receipt Date: 20241127
  Transmission Date: 20250114
  Serious: Yes (Other)
  Sender: ELI LILLY AND COMPANY
  Company Number: JP-ELI_LILLY_AND_COMPANY-JP202411000057

PATIENT
  Age: 13 Year
  Sex: Female
  Weight: 38.6 kg

DRUGS (5)
  1. REYVOW [Suspect]
     Active Substance: LASMIDITAN
     Indication: Migraine
     Dosage: 100 MG, SINGLE
     Route: 048
     Dates: start: 20241025, end: 20241025
  2. SUMATRIPTAN SUCCINATE [Suspect]
     Active Substance: SUMATRIPTAN SUCCINATE
     Indication: Migraine
     Dosage: 50 MG, PRN
     Route: 048
     Dates: start: 20240712
  3. GOREISAN [ALISMA PLANTAGO-AQUATICA SUBSP. ORI [Concomitant]
     Indication: Migraine
     Dosage: 3 G, BID
     Route: 048
  4. MELATOBEL [Concomitant]
     Indication: Initial insomnia
     Dosage: 3 MG, DAILY
     Route: 048
  5. MIDODRINE HYDROCHLORIDE [Concomitant]
     Active Substance: MIDODRINE HYDROCHLORIDE
     Indication: Orthostatic intolerance
     Dosage: 2 MG, BID
     Route: 048
     Dates: start: 20220511

REACTIONS (2)
  - Serotonin syndrome [Recovered/Resolved]
  - Off label use [Unknown]

NARRATIVE: CASE EVENT DATE: 20241025
